FAERS Safety Report 7642086-7 (Version None)
Quarter: 2011Q3

REPORT INFORMATION
  Report Type: 
  Country: None (occurrence: None)
  Receive Date: 20110728
  Receipt Date: 20110720
  Transmission Date: 20111222
  Serious: Yes (Death, Hospitalization, Other)
  Sender: FDA-Public Use
  Company Number: US-ELI_LILLY_AND_COMPANY-US201102001818

PATIENT
  Sex: Female

DRUGS (4)
  1. COUMADIN [Concomitant]
     Dosage: UNK, UNKNOWN
     Route: 065
  2. EFFIENT [Suspect]
     Dosage: 10 (UNKNOWN UNITS), QD
     Route: 048
     Dates: start: 20110110, end: 20110114
  3. PRADAXA [Concomitant]
     Dosage: UNK, UNKNOWN
     Route: 065
  4. PLAVIX [Concomitant]
     Dosage: UNK, UNKNOWN
     Route: 065

REACTIONS (3)
  - HAEMORRHAGE [None]
  - MYOCARDIAL INFARCTION [None]
  - HAEMATOMA [None]
